FAERS Safety Report 18777644 (Version 1)
Quarter: 2021Q1

REPORT INFORMATION
  Report Type: Spontaneous
  Country: US (occurrence: US)
  Receive Date: 20210123
  Receipt Date: 20210123
  Transmission Date: 20210419
  Serious: No
  Sender: FDA-Public Use
  Company Number: US-JNJFOC-20210124114

PATIENT
  Age: 4 Decade
  Sex: Male
  Weight: 65.83 kg

DRUGS (1)
  1. MENS ROGAINE EXTRA STRENGTH [Suspect]
     Active Substance: MINOXIDIL
     Indication: ALOPECIA
     Dosage: HALF A CAPFUL TWICE DAY, LAST DATE OF ADMINISTRATION: 13?JAN?2021
     Route: 062
     Dates: start: 20180101

REACTIONS (3)
  - Application site dryness [Not Recovered/Not Resolved]
  - Application site acne [Not Recovered/Not Resolved]
  - Application site pruritus [Not Recovered/Not Resolved]

NARRATIVE: CASE EVENT DATE: 20201125
